FAERS Safety Report 5310975-4 (Version None)
Quarter: 2007Q2

REPORT INFORMATION
  Report Type: 
  Country: None (occurrence: None)
  Receive Date: 20070427
  Receipt Date: 20070427
  Transmission Date: 20071010
  Serious: No
  Sender: FDA-Public Use
  Company Number: None

PATIENT
  Sex: Female
  Weight: 52.6173 kg

DRUGS (1)
  1. SIMVASTATIN 20MG 1 QD [Suspect]
     Indication: HYPERCHOLESTEROLAEMIA
     Dosage: 20MG QD
     Dates: start: 20060724, end: 20060911

REACTIONS (1)
  - MUSCLE SPASMS [None]
